FAERS Safety Report 25106238 (Version 1)
Quarter: 2025Q1

REPORT INFORMATION
  Report Type: Spontaneous
  Country: US (occurrence: US)
  Receive Date: 20250321
  Receipt Date: 20250321
  Transmission Date: 20250409
  Serious: No
  Sender: EMD SERONO INC
  Company Number: US-Merck Healthcare KGaA-2025013026

PATIENT
  Sex: Male

DRUGS (4)
  1. REBIF [Suspect]
     Active Substance: INTERFERON BETA-1A
     Indication: Multiple sclerosis
  2. ALBUTEROL [Concomitant]
     Active Substance: ALBUTEROL
     Indication: Product used for unknown indication
  3. CALCIUM MAGNESIUM AND ZINC [Concomitant]
     Indication: Product used for unknown indication
  4. CHOLECALCIFEROL [Concomitant]
     Active Substance: CHOLECALCIFEROL
     Indication: Product used for unknown indication

REACTIONS (6)
  - Visual impairment [Unknown]
  - Stress [Unknown]
  - Multiple sclerosis [Unknown]
  - Hypoaesthesia oral [Unknown]
  - Cognitive disorder [Unknown]
  - Aphasia [Unknown]
